FAERS Safety Report 15112137 (Version 1)
Quarter: 2018Q3

REPORT INFORMATION
  Report Type: Report from Study
  Country: CA (occurrence: CA)
  Receive Date: 20180705
  Receipt Date: 20180705
  Transmission Date: 20181010
  Serious: Yes (Other)
  Sender: FDA-Public Use
  Company Number: CA-TEVA-2018-CA-918955

PATIENT
  Age: 47 Year
  Sex: Female

DRUGS (2)
  1. AZATHIOPRINE. [Suspect]
     Active Substance: AZATHIOPRINE
     Indication: CYTOGENETIC ABNORMALITY
     Route: 065
  2. STREPTOKINASE [Concomitant]
     Active Substance: STREPTOKINASE
     Indication: PNEUMONIA
     Route: 065

REACTIONS (2)
  - Lymphopenia [Unknown]
  - Neutropenia [Unknown]
